FAERS Safety Report 5877597-8 (Version None)
Quarter: 2008Q3

REPORT INFORMATION
  Report Type: 
  Country: None (occurrence: None)
  Receive Date: 20080911
  Receipt Date: 20080908
  Transmission Date: 20090109
  Serious: Yes (Death, Hospitalization, Other)
  Sender: FDA-Public Use
  Company Number: PHHY2008IT17273

PATIENT
  Sex: Male

DRUGS (1)
  1. GLEEVEC [Suspect]
     Indication: CHRONIC MYELOID LEUKAEMIA
     Dosage: 400 MG/ DAY
     Route: 048
     Dates: start: 20060601, end: 20080117

REACTIONS (8)
  - DEATH [None]
  - HAEMOGLOBIN DECREASED [None]
  - INTESTINAL INFARCTION [None]
  - NAUSEA [None]
  - PLATELET COUNT DECREASED [None]
  - SURGERY [None]
  - VOMITING [None]
  - WHITE BLOOD CELL COUNT INCREASED [None]
